FAERS Safety Report 5006208-9 (Version None)
Quarter: 2006Q1

REPORT INFORMATION
  Report Type: 
  Country: None (occurrence: None)
  Receive Date: 20060327
  Receipt Date: 20060224
  Transmission Date: 20060701
  Serious: No
  Sender: FDA-Public Use
  Company Number: 222549

PATIENT
  Age: 62 Year
  Sex: Female

DRUGS (2)
  1. AVASTIN [Suspect]
     Indication: PANCREATIC CARCINOMA
     Dates: start: 20051101
  2. GEMCITABINE [Suspect]
     Indication: PANCREATIC CARCINOMA

REACTIONS (2)
  - FLATULENCE [None]
  - NIGHT SWEATS [None]
